FAERS Safety Report 6449698-7 (Version None)
Quarter: 2009Q4

REPORT INFORMATION
  Report Type: 
  Country: None (occurrence: None)
  Receive Date: 20091120
  Receipt Date: 20091109
  Transmission Date: 20100525
  Serious: Yes (Hospitalization)
  Sender: FDA-Public Use
  Company Number: JP-AMGEN-US336542

PATIENT
  Sex: Female
  Weight: 43 kg

DRUGS (9)
  1. ENBREL [Suspect]
     Indication: RHEUMATOID ARTHRITIS
     Route: 058
     Dates: start: 20080414, end: 20090119
  2. PREDNISOLONE [Suspect]
     Indication: RHEUMATOID ARTHRITIS
     Route: 048
     Dates: start: 19970425
  3. RHEUMATREX [Suspect]
     Indication: RHEUMATOID ARTHRITIS
     Dosage: 2MG
     Route: 048
     Dates: start: 19990817, end: 20090126
  4. TAKEPRON [Concomitant]
     Route: 048
     Dates: start: 20040325
  5. BLOPRESS [Concomitant]
     Route: 048
  6. ASPIRIN [Concomitant]
     Dosage: UNSPECIFIED
     Route: 065
     Dates: end: 20090101
  7. NORVASC [Concomitant]
     Route: 048
  8. LIPITOR [Concomitant]
     Route: 048
  9. CALCITRIOL [Concomitant]
     Route: 048
     Dates: start: 19990817

REACTIONS (4)
  - CONDITION AGGRAVATED [None]
  - EOSINOPHILIC PNEUMONIA [None]
  - HYPERSENSITIVITY [None]
  - RHEUMATOID ARTHRITIS [None]
